FAERS Safety Report 4375659-8 (Version None)
Quarter: 2004Q2

REPORT INFORMATION
  Report Type: 
  Country: None (occurrence: None)
  Receive Date: 20040610
  Receipt Date: 20040601
  Transmission Date: 20050107
  Serious: Yes (Hospitalization)
  Sender: FDA-Public Use
  Company Number: FR-GLAXOSMITHKLINE-B0334467A

PATIENT
  Age: 54 Year
  Sex: Female

DRUGS (6)
  1. ZIAGEN [Suspect]
     Indication: HIV INFECTION
     Route: 048
  2. EPIVIR [Suspect]
     Indication: HIV INFECTION
     Route: 048
  3. NORVIR [Suspect]
     Indication: HIV INFECTION
     Route: 048
  4. ALDACTONE [Concomitant]
     Route: 048
  5. AVLOCARDYL [Concomitant]
     Route: 048
  6. DIFRAREL [Concomitant]
     Route: 048

REACTIONS (2)
  - COMA [None]
  - HEPATIC ENZYME INCREASED [None]
